FAERS Safety Report 24319608 (Version 4)
Quarter: 2025Q2

REPORT INFORMATION
  Report Type: Spontaneous
  Country: US (occurrence: US)
  Receive Date: 20240914
  Receipt Date: 20250417
  Transmission Date: 20250717
  Serious: No
  Sender: SANOFI AVENTIS
  Company Number: US-SA-2024SA264983

PATIENT
  Age: 56 Year
  Sex: Female

DRUGS (4)
  1. DUPIXENT [Suspect]
     Active Substance: DUPILUMAB
     Indication: Asthma
     Route: 058
     Dates: start: 202405, end: 202405
  2. DUPIXENT [Suspect]
     Active Substance: DUPILUMAB
     Dosage: 300 MG, Q15D
     Route: 058
     Dates: start: 2024
  3. DUPIXENT [Suspect]
     Active Substance: DUPILUMAB
     Dosage: 300 MG, QOW
     Route: 058
     Dates: start: 2024, end: 20240821
  4. DUPIXENT [Suspect]
     Active Substance: DUPILUMAB
     Dosage: 300 MG, QOW
     Route: 058
     Dates: start: 2024

REACTIONS (20)
  - Arthroscopy [Unknown]
  - Oedema peripheral [Unknown]
  - Osteoarthritis [Unknown]
  - Procedural pain [Not Recovered/Not Resolved]
  - Hypoaesthesia [Not Recovered/Not Resolved]
  - Erythema [Not Recovered/Not Resolved]
  - Paraesthesia [Not Recovered/Not Resolved]
  - Exostosis [Unknown]
  - Hysterectomy [Not Recovered/Not Resolved]
  - Nasal congestion [Unknown]
  - Asthma [Unknown]
  - Wheezing [Unknown]
  - Dysphonia [Unknown]
  - Productive cough [Unknown]
  - Arthralgia [Unknown]
  - Oropharyngeal pain [Unknown]
  - Discharge [Unknown]
  - Stomatitis [Not Recovered/Not Resolved]
  - Injection site pain [Unknown]
  - Oral pain [Unknown]

NARRATIVE: CASE EVENT DATE: 20240101
